FAERS Safety Report 22588611 (Version 1)
Quarter: 2023Q2

REPORT INFORMATION
  Report Type: Spontaneous
  Country: US (occurrence: None)
  Receive Date: 20230611
  Receipt Date: 20230611
  Transmission Date: 20230721
  Serious: Yes (Other)
  Sender: FDA-Public Use
  Company Number: None

PATIENT
  Age: 38 Year
  Sex: Male
  Weight: 69 kg

DRUGS (6)
  1. TECOVIRIMAT [Suspect]
     Active Substance: TECOVIRIMAT
     Indication: Monkeypox
     Dosage: FREQUENCY : TWICE A DAY;?
     Route: 048
     Dates: start: 20230524, end: 20230609
  2. TECOVIRIMAT [Suspect]
     Active Substance: TECOVIRIMAT
     Indication: HIV infection
  3. TECOVIRIMAT [Suspect]
     Active Substance: TECOVIRIMAT
     Indication: Acquired immunodeficiency syndrome
  4. CIDOFOVIR [Concomitant]
     Active Substance: CIDOFOVIR
     Dates: start: 20230504
  5. DESCOVY [Concomitant]
     Active Substance: EMTRICITABINE\TENOFOVIR ALAFENAMIDE FUMARATE
     Dates: start: 20230106
  6. TIVICAY [Concomitant]
     Active Substance: DOLUTEGRAVIR SODIUM
     Dates: start: 20230106

REACTIONS (1)
  - Hallucination [None]

NARRATIVE: CASE EVENT DATE: 20230527
